FAERS Safety Report 7347912-7 (Version None)
Quarter: 2011Q1

REPORT INFORMATION
  Report Type: 
  Country: None (occurrence: None)
  Receive Date: 20110311
  Receipt Date: 20110307
  Transmission Date: 20110831
  Serious: Yes (Hospitalization, Other)
  Sender: FDA-Public Use
  Company Number: US-ABBOTT-11P-163-0710032-00

PATIENT
  Sex: Female
  Weight: 42.222 kg

DRUGS (5)
  1. HUMIRA [Suspect]
     Indication: CROHN'S DISEASE
     Route: 058
     Dates: start: 20100801, end: 20110101
  2. HUMIRA [Suspect]
     Route: 058
     Dates: start: 20110227
  3. FLAGYL [Concomitant]
     Indication: PRODUCT USED FOR UNKNOWN INDICATION
  4. LOPERAMIDE [Concomitant]
     Indication: PRODUCT USED FOR UNKNOWN INDICATION
  5. IMURAN [Concomitant]
     Indication: PRODUCT USED FOR UNKNOWN INDICATION
     Dosage: ONE AND HALF TABLETS DAILY

REACTIONS (6)
  - GASTROINTESTINAL INFLAMMATION [None]
  - VIRAL INFECTION [None]
  - DEHYDRATION [None]
  - DIARRHOEA [None]
  - BACK PAIN [None]
  - INTESTINAL STENOSIS [None]
